FAERS Safety Report 20128909 (Version 1)
Quarter: 2021Q4

REPORT INFORMATION
  Report Type: Spontaneous
  Country: JP (occurrence: JP)
  Receive Date: 20211130
  Receipt Date: 20211130
  Transmission Date: 20220303
  Serious: Yes (Hospitalization)
  Sender: FDA-Public Use
  Company Number: JP-LUPIN PHARMACEUTICALS INC.-2021-23254

PATIENT
  Age: 54 Year
  Sex: Male

DRUGS (8)
  1. METHYLPREDNISOLONE [Suspect]
     Active Substance: METHYLPREDNISOLONE
     Indication: Tropical spastic paresis
     Dosage: 1000 MG, DAILY, PULSE DOSE; FOR 3 DAYS FOR CYCLES
     Route: 065
     Dates: start: 2019
  2. HYDROCORTISONE [Suspect]
     Active Substance: HYDROCORTISONE
     Indication: Tropical spastic paresis
     Dosage: 50 MILLIGRAM, ONCE IN A WEEK, FOR A TOTAL OF 4 TIME
     Route: 065
     Dates: start: 2019
  3. METHOTREXATE [Concomitant]
     Active Substance: METHOTREXATE
     Indication: Adult T-cell lymphoma/leukaemia
     Dosage: 15 MILLIGRAM
     Route: 037
     Dates: start: 2019
  4. MOGAMULIZUMAB [Concomitant]
     Active Substance: MOGAMULIZUMAB
     Indication: Adult T-cell lymphoma/leukaemia
     Dosage: UNK,EIGHT COURSES
     Route: 065
     Dates: start: 2020
  5. PREDNISOLONE [Concomitant]
     Active Substance: PREDNISOLONE
     Indication: Tropical spastic paresis
     Dosage: 25 MILLIGRAM
     Route: 048
     Dates: start: 2019
  6. PREDNISOLONE [Concomitant]
     Active Substance: PREDNISOLONE
     Dosage: 7.5 MG
     Route: 048
  7. CYCLOPHOSPHAMIDE [Concomitant]
     Active Substance: CYCLOPHOSPHAMIDE
     Indication: Adult T-cell lymphoma/leukaemia
     Dosage: UNKNOWN, TWO COURSES
     Route: 065
     Dates: start: 2020
  8. DOXORUBICIN [Concomitant]
     Active Substance: DOXORUBICIN
     Indication: Adult T-cell lymphoma/leukaemia
     Dosage: UNKNOWN, TWO COURSES
     Route: 065
     Dates: start: 2020

REACTIONS (2)
  - Drug ineffective for unapproved indication [Unknown]
  - Off label use [Unknown]

NARRATIVE: CASE EVENT DATE: 20190101
